FAERS Safety Report 22040646 (Version 1)
Quarter: 2023Q1

REPORT INFORMATION
  Report Type: Spontaneous
  Country: CN (occurrence: CN)
  Receive Date: 20230227
  Receipt Date: 20230227
  Transmission Date: 20230418
  Serious: Yes (Other)
  Sender: FDA-Public Use
  Company Number: CN-BAYER-2023A024003

PATIENT
  Age: 50 Year
  Sex: Female

DRUGS (2)
  1. IOPROMIDE [Suspect]
     Active Substance: IOPROMIDE
     Indication: Angiogram cerebral
     Dosage: 6 ML, ONCE(4ML/S)
     Route: 013
  2. IOPROMIDE [Suspect]
     Active Substance: IOPROMIDE
     Indication: Nasopharyngeal cancer recurrent

REACTIONS (1)
  - Contrast encephalopathy [Recovering/Resolving]
